FAERS Safety Report 25704926 (Version 1)
Quarter: 2025Q3

REPORT INFORMATION
  Report Type: Report from Study
  Country: US (occurrence: US)
  Receive Date: 20250820
  Receipt Date: 20250820
  Transmission Date: 20251021
  Serious: Yes (Other)
  Sender: MALLINCKRODT
  Company Number: US-MALLINCKRODT-MNK202504963

PATIENT
  Sex: Male

DRUGS (5)
  1. CORTICOTROPIN [Suspect]
     Active Substance: CORTICOTROPIN
     Indication: Pulmonary sarcoidosis
  2. PREDNISONE [Concomitant]
     Active Substance: PREDNISONE
  3. OFEV [Concomitant]
     Active Substance: NINTEDANIB
  4. METHOTREXATE [Concomitant]
     Active Substance: METHOTREXATE
  5. METHOTREXATE [Concomitant]
     Active Substance: METHOTREXATE
     Dates: start: 2025

REACTIONS (4)
  - Neurosarcoidosis [Unknown]
  - COVID-19 [Unknown]
  - Decreased appetite [Unknown]
  - Drug ineffective [Unknown]
